FAERS Safety Report 21875050 (Version 3)
Quarter: 2023Q1

REPORT INFORMATION
  Report Type: Spontaneous
  Country: US (occurrence: US)
  Receive Date: 20230117
  Receipt Date: 20230222
  Transmission Date: 20230417
  Serious: No
  Sender: FDA-Public Use
  Company Number: US-AMGEN-USASP2023004118

PATIENT
  Age: 74 Year
  Sex: Female
  Weight: 63.039 kg

DRUGS (1)
  1. REPATHA [Suspect]
     Active Substance: EVOLOCUMAB
     Indication: Blood cholesterol abnormal
     Dosage: 140 MILLIGRAM, Q2WK
     Route: 065
     Dates: start: 20190228

REACTIONS (4)
  - Accidental exposure to product [Unknown]
  - Device difficult to use [Unknown]
  - Drug dose omission by device [Unknown]
  - Contusion [Unknown]

NARRATIVE: CASE EVENT DATE: 20221201
